FAERS Safety Report 4304829-X (Version None)
Quarter: 2004Q1

REPORT INFORMATION
  Report Type: 
  Country: None (occurrence: None)
  Receive Date: 20040223
  Receipt Date: 20030610
  Transmission Date: 20041129
  Serious: No
  Sender: FDA-Public Use
  Company Number: TAP2003Q01433

PATIENT
  Age: 76 Year
  Sex: Male
  Weight: 65.7716 kg

DRUGS (13)
  1. LUPRON DEPOT-4 [Suspect]
     Indication: PROSTATE CANCER
     Dosage: 30 MG, ONCE, UNKNOWN
     Dates: start: 20030501, end: 20030501
  2. THEOPHYLLINE [Concomitant]
  3. MULTIVITAMIN (MULTIVITAMINS) [Concomitant]
  4. SELENIUM (SELENIUM) [Concomitant]
  5. POTASSIUM (POTASSIUM) [Concomitant]
  6. ZINC (ZINC) [Concomitant]
  7. CALCIUM (CALCIUM) [Concomitant]
  8. GUIAFENEX (SIC) [Concomitant]
  9. AEROBID [Concomitant]
  10. SEREVENT [Concomitant]
  11. ALBUTEROL [Concomitant]
  12. CITRACAL (CALCIUM CITRATE) [Concomitant]
  13. CORRECTAL (BISACODYL) [Concomitant]

REACTIONS (13)
  - ABDOMINAL DISTENSION [None]
  - ASTHENIA [None]
  - ASTHMA [None]
  - BACK PAIN [None]
  - CONDITION AGGRAVATED [None]
  - DEPRESSION [None]
  - ERECTILE DYSFUNCTION [None]
  - EYE PAIN [None]
  - HOT FLUSH [None]
  - NERVOUSNESS [None]
  - OEDEMA PERIPHERAL [None]
  - PAIN IN EXTREMITY [None]
  - SPINAL COMPRESSION FRACTURE [None]
